FAERS Safety Report 5774516-X (Version None)
Quarter: 2008Q2

REPORT INFORMATION
  Report Type: 
  Country: None (occurrence: None)
  Receive Date: 20080616
  Receipt Date: 20080530
  Transmission Date: 20081010
  Serious: No
  Sender: FDA-Public Use
  Company Number: US-BOEHRINGER INGELHEIM GMBH, GERMANY-2008-BP-04377BP

PATIENT
  Sex: Female

DRUGS (12)
  1. ATROVENT HFA [Suspect]
     Indication: CHRONIC OBSTRUCTIVE PULMONARY DISEASE
     Route: 055
     Dates: start: 20070101, end: 20080319
  2. ATROVENT HFA [Suspect]
     Indication: ASTHMA
  3. XOPENEX [Concomitant]
  4. BRETHINE [Concomitant]
  5. TYLENOL [Concomitant]
  6. PRINIVIL [Concomitant]
  7. POTASSIUM CHLORIDE [Concomitant]
  8. BENADRYL [Concomitant]
  9. REGLAN [Concomitant]
  10. JANUVIA [Concomitant]
  11. BUMEX [Concomitant]
  12. ALLEGRA [Concomitant]

REACTIONS (2)
  - ASTHMA [None]
  - DYSGEUSIA [None]
